FAERS Safety Report 23508392 (Version 2)
Quarter: 2025Q2

REPORT INFORMATION
  Report Type: Spontaneous
  Country: CA (occurrence: CA)
  Receive Date: 20240209
  Receipt Date: 20250528
  Transmission Date: 20250717
  Serious: Yes (Hospitalization, Other)
  Sender: SANDOZ
  Company Number: CA-002147023-PHHY2017CA102690

PATIENT
  Age: 73 Year
  Sex: Male

DRUGS (17)
  1. METOPROLOL [Suspect]
     Active Substance: METOPROLOL
     Dosage: 25 MG, BID
     Route: 048
  2. METOPROLOL [Suspect]
     Active Substance: METOPROLOL
     Indication: Hypertension
     Dosage: 25 MG, BID (1 TABLET EVERY 12 HOURS)
     Route: 048
  3. METOPROLOL [Suspect]
     Active Substance: METOPROLOL
     Dosage: 25 MG, BID (1 TABLET. ? OF 25 MG, TWICE DAILY MORNING AND NIGHT)
     Route: 048
  4. SANDOSTATIN [Suspect]
     Active Substance: OCTREOTIDE ACETATE
     Indication: Carcinoid tumour
     Dosage: 20 MG, QMO (EVERY 4 WEEKS)
     Route: 030
     Dates: start: 20170608
  5. SANDOSTATIN [Suspect]
     Active Substance: OCTREOTIDE ACETATE
     Dosage: 30 MG, QMO
     Route: 030
     Dates: start: 20170608
  6. SANDOSTATIN [Suspect]
     Active Substance: OCTREOTIDE ACETATE
     Dosage: 30 MG, QMO (EVERY 4 WEEKS)
     Route: 030
     Dates: start: 20170608
  7. SANDOSTATIN [Suspect]
     Active Substance: OCTREOTIDE ACETATE
     Dosage: 60 MG, QMO
     Route: 030
     Dates: start: 20180315
  8. SANDOSTATIN [Suspect]
     Active Substance: OCTREOTIDE ACETATE
     Dosage: 60 MG, QMO
     Route: 030
  9. SANDOSTATIN [Suspect]
     Active Substance: OCTREOTIDE ACETATE
     Route: 065
  10. ALTACE [Concomitant]
     Active Substance: RAMIPRIL
     Indication: Blood pressure abnormal
     Dosage: 2.5 MG, BID
     Route: 048
  11. ATORVASTATIN [Concomitant]
     Active Substance: ATORVASTATIN
     Indication: Product used for unknown indication
     Dosage: UNK, QD 1 OT
     Route: 048
  12. CORTISONE [Concomitant]
     Active Substance: CORTISONE
     Indication: Product used for unknown indication
     Route: 065
     Dates: start: 20211112
  13. DESOXIMETASONE [Concomitant]
     Active Substance: DESOXIMETASONE
     Indication: Product used for unknown indication
     Route: 065
  14. OMEPRAZOLE [Concomitant]
     Active Substance: OMEPRAZOLE
     Indication: Product used for unknown indication
     Dosage: UNK, QD 1 OT
     Route: 048
  15. SACUBITRIL [Concomitant]
     Active Substance: SACUBITRIL
     Indication: Product used for unknown indication
     Dosage: UNK, QD 1 OT
     Route: 048
  16. VALSARTAN [Concomitant]
     Active Substance: VALSARTAN
     Indication: Product used for unknown indication
     Dosage: UNK, QD 1 OT
     Route: 048
  17. XARELTO [Concomitant]
     Active Substance: RIVAROXABAN
     Indication: Product used for unknown indication
     Dosage: UNK, QD 1 OT
     Route: 048

REACTIONS (41)
  - Food poisoning [Unknown]
  - Abdominal pain [Unknown]
  - Fall [Unknown]
  - Loss of consciousness [Unknown]
  - Femur fracture [Unknown]
  - Intestinal obstruction [Unknown]
  - Diarrhoea [Unknown]
  - Lung abscess [Unknown]
  - Pneumonia [Unknown]
  - Pulmonary embolism [Recovered/Resolved]
  - Weight increased [Recovered/Resolved]
  - Carcinoid tumour [Unknown]
  - Metastases to liver [Unknown]
  - Metastases to bone [Unknown]
  - Back pain [Unknown]
  - Malignant neoplasm progression [Unknown]
  - Atrioventricular block [Unknown]
  - Hypotension [Unknown]
  - Lower respiratory tract congestion [Unknown]
  - Myalgia [Unknown]
  - Influenza [Unknown]
  - Blood pressure increased [Unknown]
  - Pain in extremity [Unknown]
  - Peripheral coldness [Unknown]
  - Muscular weakness [Unknown]
  - Pain [Unknown]
  - Arthralgia [Unknown]
  - Somnolence [Unknown]
  - Nocturia [Unknown]
  - Urine odour abnormal [Unknown]
  - Urinary tract infection [Unknown]
  - Chills [Unknown]
  - Malaise [Unknown]
  - Fatigue [Unknown]
  - Diarrhoea [Recovered/Resolved]
  - Faeces soft [Recovered/Resolved]
  - Heart rate decreased [Unknown]
  - Dizziness [Unknown]
  - Flatulence [Unknown]
  - Asthenia [Recovering/Resolving]
  - Decreased appetite [Unknown]

NARRATIVE: CASE EVENT DATE: 20170101
